FAERS Safety Report 9204960 (Version 1)
Quarter: 2013Q1

REPORT INFORMATION
  Report Type: Spontaneous
  Country: US (occurrence: None)
  Receive Date: 20120709
  Receipt Date: 20120709
  Transmission Date: 20140127
  Serious: Yes (Other)
  Sender: FDA-Public Use
  Company Number: PHEH2012US000669

PATIENT
  Age: 80 Year
  Sex: Male

DRUGS (2)
  1. GLEEVEC (IMATINIB) [Suspect]
  2. GLEEVEC [Suspect]
     Dates: start: 20070827

REACTIONS (4)
  - Anaemia [None]
  - Blood pressure abnormal [None]
  - Wound secretion [None]
  - Epistaxis [None]
